FAERS Safety Report 16756946 (Version 2)
Quarter: 2019Q3

REPORT INFORMATION
  Report Type: Spontaneous
  Country: JP (occurrence: JP)
  Receive Date: 20190829
  Receipt Date: 20190927
  Transmission Date: 20191005
  Serious: Yes (Life-Threatening, Hospitalization)
  Sender: FDA-Public Use
  Company Number: JP-JNJFOC-20190834837

PATIENT
  Age: 82 Year
  Sex: Male
  Weight: 58 kg

DRUGS (9)
  1. SIMVASTATIN. [Concomitant]
     Active Substance: SIMVASTATIN
     Dosage: DAILY DOSE 5 MG
     Route: 048
     Dates: start: 201801
  2. HEPARIN [Suspect]
     Active Substance: HEPARIN SODIUM
     Indication: PRODUCT USED FOR UNKNOWN INDICATION
     Route: 065
  3. RIVAROXABAN [Suspect]
     Active Substance: RIVAROXABAN
     Indication: ANTICOAGULANT THERAPY
  4. ALMYLAR [Concomitant]
     Active Substance: ATENOLOL
     Dosage: DAILY DOSE 25 MG
     Dates: start: 201803
  5. URIADEC [Concomitant]
     Active Substance: TOPIROXOSTAT
     Dosage: DAILY DOSE 40 MG
     Dates: start: 201805
  6. VILDAGLIPTIN [Concomitant]
     Active Substance: VILDAGLIPTIN
     Dosage: DAILY DOSE 50 MG
     Route: 048
     Dates: start: 201803
  7. IMIDAPRIL HYDROCHLORIDE [Concomitant]
     Active Substance: IMIDAPRIL HYDROCHLORIDE
     Dosage: DAILY DOSE 5 MG
     Route: 048
     Dates: start: 201803
  8. RIVAROXABAN [Suspect]
     Active Substance: RIVAROXABAN
     Indication: ATRIAL FIBRILLATION
     Dosage: DAILY DOSE 10 MG
     Route: 048
     Dates: start: 201803, end: 20190204
  9. CILNIDIPINE [Concomitant]
     Active Substance: CILNIDIPINE
     Dosage: DAILY DOSE 10 MG
     Route: 048
     Dates: start: 201803

REACTIONS (7)
  - Ataxia [Unknown]
  - Hiccups [Recovered/Resolved]
  - Brain herniation [Recovering/Resolving]
  - Embolic stroke [Recovered/Resolved with Sequelae]
  - Aphasia [Unknown]
  - Haemorrhagic infarction [Recovered/Resolved with Sequelae]
  - Labelled drug-drug interaction medication error [Unknown]

NARRATIVE: CASE EVENT DATE: 20190204
